FAERS Safety Report 9856220 (Version 1)
Quarter: 2014Q1

REPORT INFORMATION
  Report Type: Spontaneous
  Country: US (occurrence: US)
  Receive Date: 20140130
  Receipt Date: 20140130
  Transmission Date: 20141002
  Serious: Yes (Other)
  Sender: FDA-Public Use
  Company Number: US-PFIZER INC-2014025881

PATIENT
  Sex: Male

DRUGS (3)
  1. NEURONTIN [Suspect]
     Dosage: UNK
  2. VIAGRA [Suspect]
     Dosage: 100 MG, UNK
  3. VIAGRA [Suspect]
     Dosage: 50 MG, UNK

REACTIONS (3)
  - Road traffic accident [Unknown]
  - Myalgia [Unknown]
  - Pain [Unknown]
